FAERS Safety Report 6122029-8 (Version None)
Quarter: 2009Q1

REPORT INFORMATION
  Report Type: 
  Country: None (occurrence: None)
  Receive Date: 20090316
  Receipt Date: 20090306
  Transmission Date: 20090719
  Serious: Yes (Hospitalization)
  Sender: FDA-Public Use
  Company Number: KV200900290

PATIENT
  Age: 51 Year
  Sex: Male

DRUGS (5)
  1. REPLIVA 21/7(IRON SUPPLEMENT) TABLET [Suspect]
     Indication: IRON DEFICIENCY
     Dosage: 151 MG, QD, ORAL
     Route: 048
     Dates: start: 20081101
  2. FLOMAX (MORNIFLUMATE) [Concomitant]
  3. AVODART [Concomitant]
  4. NEXIUM [Concomitant]
  5. MULTIVITAMIN (VITAMIN NOS) [Concomitant]

REACTIONS (2)
  - GASTROINTESTINAL HAEMORRHAGE [None]
  - POST PROCEDURAL HAEMORRHAGE [None]
